FAERS Safety Report 8518270-7 (Version None)
Quarter: 2012Q3

REPORT INFORMATION
  Report Type: 
  Country: None (occurrence: None)
  Receive Date: 20120718
  Receipt Date: 20111216
  Transmission Date: 20120928
  Serious: No
  Sender: FDA-Public Use
  Company Number: US-BRISTOL-MYERS SQUIBB COMPANY-16298663

PATIENT
  Age: 68 Year
  Sex: Male

DRUGS (1)
  1. COUMADIN [Suspect]
     Indication: ATRIAL FIBRILLATION
     Dosage: AVERAGE DOSE PER DAY:6.25MG
     Route: 048
     Dates: start: 20071201

REACTIONS (1)
  - INTERNATIONAL NORMALISED RATIO INCREASED [None]
